FAERS Safety Report 7247185-X (Version None)
Quarter: 2011Q1

REPORT INFORMATION
  Report Type: 
  Country: None (occurrence: None)
  Receive Date: 20110127
  Receipt Date: 20110118
  Transmission Date: 20110831
  Serious: Yes (Other)
  Sender: FDA-Public Use
  Company Number: CA-JNJFOC-20110104990

PATIENT
  Sex: Male
  Weight: 83.92 kg

DRUGS (11)
  1. ADVIL LIQUI-GELS [Concomitant]
     Dosage: 8X DAY
     Route: 048
  2. PRILOSEC [Concomitant]
     Route: 048
  3. NOVO-DILTAZEM [Concomitant]
     Route: 048
  4. METFORMIN HCL [Concomitant]
     Route: 048
  5. CHOLESTYRAMINE [Concomitant]
     Dosage: 1 PK
     Route: 065
  6. SPIRIVA [Concomitant]
     Route: 055
  7. BECLOVENT [Concomitant]
     Dosage: PUFF OD
     Route: 055
  8. FLOVENT [Concomitant]
     Dosage: PUFFER
     Route: 055
  9. REMICADE [Suspect]
     Indication: ANKYLOSING SPONDYLITIS
     Route: 042
  10. GAVISCON (ANTACID) [Concomitant]
     Dosage: GS - 2 QID
     Route: 048
  11. ZESTORETIC [Concomitant]
     Dosage: APO-
     Route: 048

REACTIONS (3)
  - BACK PAIN [None]
  - FALL [None]
  - MUSCULOSKELETAL CHEST PAIN [None]
